FAERS Safety Report 6763268-2 (Version None)
Quarter: 2010Q2

REPORT INFORMATION
  Report Type: 
  Country: None (occurrence: None)
  Receive Date: 20100610
  Receipt Date: 20100604
  Transmission Date: 20101027
  Serious: Yes (Other)
  Sender: FDA-Public Use
  Company Number: US-JNJFOC-20100602431

PATIENT
  Sex: Female
  Weight: 113.4 kg

DRUGS (3)
  1. DURAGESIC-100 [Suspect]
     Indication: RADICULAR PAIN
     Route: 062
  2. DURAGESIC-100 [Suspect]
     Route: 062
  3. MANY OTHER UNSPECIFIED MEDICATIONS [Concomitant]
     Indication: DRUG USE FOR UNKNOWN INDICATION
     Route: 065

REACTIONS (8)
  - ACTIVITIES OF DAILY LIVING IMPAIRED [None]
  - APPLICATION SITE REACTION [None]
  - CARDIAC MURMUR [None]
  - FEELING ABNORMAL [None]
  - PAIN [None]
  - PRODUCT QUALITY ISSUE [None]
  - TYPE 2 DIABETES MELLITUS [None]
  - WRONG TECHNIQUE IN DRUG USAGE PROCESS [None]
